FAERS Safety Report 16134156 (Version 2)
Quarter: 2019Q1

REPORT INFORMATION
  Report Type: Spontaneous
  Country: EC (occurrence: EC)
  Receive Date: 20190329
  Receipt Date: 20190329
  Transmission Date: 20190418
  Serious: Yes (Hospitalization)
  Sender: FDA-Public Use
  Company Number: EC-COLLEGIUM PHARMACEUTICAL, INC.-EC-2019COL000396

PATIENT
  Age: 90 Year
  Sex: Female

DRUGS (2)
  1. TAPENTADOL [Suspect]
     Active Substance: TAPENTADOL
     Indication: PROCEDURAL PAIN
     Dosage: UNK
  2. TRAMAL [Suspect]
     Active Substance: TRAMADOL
     Indication: PROCEDURAL PAIN
     Dosage: UNK

REACTIONS (1)
  - Acute kidney injury [Unknown]
